FAERS Safety Report 8571492-1 (Version None)
Quarter: 2012Q3

REPORT INFORMATION
  Report Type: 
  Country: None (occurrence: None)
  Receive Date: 20120806
  Receipt Date: 20120727
  Transmission Date: 20120928
  Serious: Yes (Hospitalization)
  Sender: FDA-Public Use
  Company Number: CA-JNJFOC-20120714584

PATIENT
  Sex: Male
  Weight: 108.1 kg

DRUGS (2)
  1. REMICADE [Suspect]
     Route: 042
     Dates: start: 20120727
  2. REMICADE [Suspect]
     Indication: CROHN'S DISEASE
     Route: 042
     Dates: start: 20100801

REACTIONS (1)
  - KNEE OPERATION [None]
